FAERS Safety Report 9358224 (Version 1)
Quarter: 2013Q2

REPORT INFORMATION
  Report Type: Spontaneous
  Country: US (occurrence: None)
  Receive Date: 20130619
  Receipt Date: 20130619
  Transmission Date: 20140414
  Serious: Yes (Other)
  Sender: FDA-Public Use
  Company Number: None

PATIENT
  Age: 62 Year
  Sex: Male

DRUGS (6)
  1. PEGASYS [Suspect]
     Indication: HEPATITIS C
     Route: 058
     Dates: start: 201303
  2. RIBASPHERE [Suspect]
     Route: 048
     Dates: start: 201303
  3. INCIVEK -750MG [Concomitant]
  4. IBUPROFEN [Concomitant]
  5. LORAZEPAM [Concomitant]
  6. CLARINEX [Concomitant]

REACTIONS (3)
  - Rash [None]
  - Local swelling [None]
  - Joint swelling [None]
